FAERS Safety Report 5201224-6 (Version None)
Quarter: 2007Q1

REPORT INFORMATION
  Report Type: 
  Country: None (occurrence: None)
  Receive Date: 20070103
  Receipt Date: 20060216
  Transmission Date: 20070707
  Serious: Yes (Hospitalization)
  Sender: FDA-Public Use
  Company Number: ST-2006-008863

PATIENT
  Sex: Male

DRUGS (10)
  1. OLMETEC [Suspect]
     Indication: HYPERTENSION
     Dosage: 20 MG DAILY PO
     Route: 048
  2. LOXONIN [Suspect]
     Indication: PROCEDURAL PAIN
  3. ARTIST [Suspect]
     Indication: HYPERTENSION
  4. ATELEC [Concomitant]
  5. HARNAL [Concomitant]
  6. KREMEZIN [Concomitant]
  7. ARGAMATE [Concomitant]
  8. SEREVENT [Concomitant]
  9. FLUTIDE [Concomitant]
  10. EXCELASE [Concomitant]

REACTIONS (1)
  - THROMBOCYTOPENIA [None]
